FAERS Safety Report 10090667 (Version 2)
Quarter: 2014Q2

REPORT INFORMATION
  Report Type: Spontaneous
  Country: US (occurrence: US)
  Receive Date: 20140421
  Receipt Date: 20140506
  Transmission Date: 20141212
  Serious: No
  Sender: FDA-Public Use
  Company Number: US-SHIRE-US201401383

PATIENT
  Sex: Female

DRUGS (2)
  1. LIALDA [Suspect]
     Indication: COLITIS ULCERATIVE
     Dosage: 2.4 G (TWO 1.2 G TABLETS), 1X/DAY:QD
     Route: 048
     Dates: start: 201402
  2. LIALDA [Suspect]
     Dosage: 1.2 G, 1X/DAY:QD
     Route: 048
     Dates: end: 201402

REACTIONS (1)
  - Chromaturia [Not Recovered/Not Resolved]
